FAERS Safety Report 6542269-3 (Version None)
Quarter: 2010Q1

REPORT INFORMATION
  Report Type: 
  Country: None (occurrence: None)
  Receive Date: 20100119
  Receipt Date: 20100114
  Transmission Date: 20100710
  Serious: Yes (Death)
  Sender: FDA-Public Use
  Company Number: JP-ROCHE-664949

PATIENT
  Sex: Male

DRUGS (10)
  1. CAPECITABINE [Suspect]
     Indication: GASTROOESOPHAGEAL CANCER
     Dosage: DRUG NAME REPORTED: XELODA 300(CAPECITABINE) 2 WEEKS ADMINISTRATION FOLLOWED 1 WEEK REST.
     Route: 048
     Dates: start: 20090608, end: 20090916
  2. ERBITUX [Suspect]
     Indication: GASTROOESOPHAGEAL CANCER
     Dosage: ROUTE: INTRAVENOUS (NOT OTHERWISE SPECIFIED)
     Route: 042
     Dates: start: 20090608, end: 20090101
  3. ERBITUX [Suspect]
     Dosage: ROUTE: INTRAVENOUS (NOT OTHERWISE SPECIFIED)
     Route: 042
     Dates: start: 20090101, end: 20090915
  4. CISPLATIN [Concomitant]
     Dosage: ROUTE: INTRAVENOUS (NOT OTHERWISE SPECIFIED)
     Route: 042
     Dates: start: 20090608, end: 20090608
  5. TELMISARTAN [Concomitant]
     Dosage: FORM: ORAL FORMULATION (NOT OTHERWISE SPECIFIED).
     Route: 048
     Dates: start: 20070101, end: 20090728
  6. ATENOLOL [Concomitant]
     Dosage: FORM: ORAL FORMULATION (NOT OTHERTWISE SPECIFIED).
     Route: 048
     Dates: start: 20070101, end: 20090728
  7. MOSAPRIDE CITRATE [Concomitant]
     Dosage: FORM: ORAL FORMULATION (NOT OTHERTWISE SPECIFIED).
     Route: 048
     Dates: start: 20090401, end: 20090916
  8. REBAMIPIDE [Concomitant]
     Dosage: FORM: ORAL FORMULATION (NOT OTHERTWISE SPECIFIED).
     Route: 048
     Dates: start: 20090401, end: 20090916
  9. LANSOPRAZOLE [Concomitant]
     Route: 065
     Dates: start: 20090401, end: 20090916
  10. SENNOSIDE [Concomitant]
     Dosage: FORM: ORAL FORMULATION (NOT OTHERTWISE SPECIFIED).
     Route: 048
     Dates: start: 20090522, end: 20090901

REACTIONS (5)
  - ACUTE MYOCARDIAL INFARCTION [None]
  - BLOOD CREATININE INCREASED [None]
  - CARDIO-RESPIRATORY ARREST [None]
  - CORONARY ARTERY OCCLUSION [None]
  - VENTRICULAR TACHYCARDIA [None]
